FAERS Safety Report 24695847 (Version 1)
Quarter: 2024Q4

REPORT INFORMATION
  Report Type: Spontaneous
  Country: US (occurrence: US)
  Receive Date: 20241204
  Receipt Date: 20241204
  Transmission Date: 20250115
  Serious: No
  Sender: PACIRA
  Company Number: US-ORG100016242-2024000453

PATIENT
  Age: 64 Year
  Sex: Female

DRUGS (1)
  1. ZILRETTA [Suspect]
     Active Substance: TRIAMCINOLONE ACETONIDE
     Indication: Meniscus injury
     Dosage: NOT PROVIDED
     Route: 050
     Dates: start: 20240514, end: 20240514

REACTIONS (3)
  - Therapeutic response decreased [Unknown]
  - Recalled product administered [Unknown]
  - Intermenstrual bleeding [Unknown]

NARRATIVE: CASE EVENT DATE: 20240501
